FAERS Safety Report 7820866-2 (Version None)
Quarter: 2011Q4

REPORT INFORMATION
  Report Type: 
  Country: None (occurrence: None)
  Receive Date: 20111018
  Receipt Date: 20100916
  Transmission Date: 20120403
  Serious: No
  Sender: FDA-Public Use
  Company Number: US-ASTRAZENECA-2010SE43904

PATIENT
  Age: 39 Year
  Sex: Male

DRUGS (1)
  1. SYMBICORT [Suspect]
     Indication: BRONCHITIS
     Dosage: 80/4.5 TWO PUFFS, 320 MCG DAILY
     Route: 055
     Dates: start: 20100904

REACTIONS (3)
  - CHEST PAIN [None]
  - FATIGUE [None]
  - DYSPEPSIA [None]
